FAERS Safety Report 5748344-5 (Version None)
Quarter: 2008Q2

REPORT INFORMATION
  Report Type: 
  Country: None (occurrence: None)
  Receive Date: 20080523
  Receipt Date: 20080515
  Transmission Date: 20081010
  Serious: Yes (Life-Threatening, Hospitalization)
  Sender: FDA-Public Use
  Company Number: CH-PFIZER INC-2008022768

PATIENT
  Sex: Female
  Weight: 78 kg

DRUGS (6)
  1. CELEBREX [Suspect]
     Indication: OSTEOARTHRITIS
     Route: 048
     Dates: start: 20050101, end: 20080211
  2. TORSEMIDE [Concomitant]
     Route: 048
  3. ANTIDEPRESSANTS [Concomitant]
  4. GLUCOVANCE [Concomitant]
     Dosage: TEXT:250MG/1.25MG BID
     Route: 048
  5. BISOPRODOL FUMARATE [Concomitant]
     Dosage: DAILY DOSE:2.5MG
     Route: 048
  6. FOSAMAX [Concomitant]
     Route: 048

REACTIONS (3)
  - CARDIAC FAILURE [None]
  - GASTROINTESTINAL HAEMORRHAGE [None]
  - HYPOCHROMIC ANAEMIA [None]
